FAERS Safety Report 5298638-5 (Version None)
Quarter: 2007Q1

REPORT INFORMATION
  Report Type: 
  Country: None (occurrence: None)
  Receive Date: 20070201
  Receipt Date: 20061103
  Transmission Date: 20070707
  Serious: No
  Sender: FDA-Public Use
  Company Number: 2006PV024583

PATIENT
  Age: 60 Year
  Sex: Female
  Weight: 122.4712 kg

DRUGS (1)
  1. BYETTA [Suspect]
     Indication: DRUG USE FOR UNKNOWN INDICATION
     Dosage: 10 MCG;QD;SC
     Route: 058

REACTIONS (1)
  - WEIGHT DECREASED [None]
